FAERS Safety Report 8140676-9 (Version None)
Quarter: 2012Q1

REPORT INFORMATION
  Report Type: 
  Country: None (occurrence: None)
  Receive Date: 20120216
  Receipt Date: 20120208
  Transmission Date: 20120608
  Serious: Yes (Hospitalization)
  Sender: FDA-Public Use
  Company Number: US-BAYER-2011-075656

PATIENT
  Age: 50 Year
  Sex: Female
  Weight: 66 kg

DRUGS (3)
  1. ASCORBIC ACID [Concomitant]
  2. YASMIN [Suspect]
     Indication: HOT FLUSH
     Dosage: UNK
     Route: 048
     Dates: start: 20050317, end: 20051026
  3. ASTELIN [Concomitant]
     Route: 045

REACTIONS (2)
  - PULMONARY EMBOLISM [None]
  - PAIN [None]
